FAERS Safety Report 11120821 (Version 7)
Quarter: 2016Q1

REPORT INFORMATION
  Report Type: Spontaneous
  Country: BR (occurrence: BR)
  Receive Date: 20150519
  Receipt Date: 20160222
  Transmission Date: 20160525
  Serious: Yes (Other)
  Sender: FDA-Public Use
  Company Number: BR-ROCHE-1579475

PATIENT
  Age: 56 Year
  Sex: Female
  Weight: 48 kg

DRUGS (2)
  1. MABTHERA [Suspect]
     Active Substance: RITUXIMAB
     Indication: PRODUCT USED FOR UNKNOWN INDICATION
     Dosage: 4 SESSIONS OF RITUXIMAB.?LATEST RITUXIMAB INFUSION ON 29/MAY/2015.
     Route: 042
  2. PACLITAXEL. [Concomitant]
     Active Substance: PACLITAXEL

REACTIONS (4)
  - Conjunctival haemorrhage [Unknown]
  - Pruritus [Unknown]
  - Immune thrombocytopenic purpura [Unknown]
  - Erythema [Unknown]

NARRATIVE: CASE EVENT DATE: 20150508
